FAERS Safety Report 5921395-3 (Version None)
Quarter: 2008Q4

REPORT INFORMATION
  Report Type: 
  Country: None (occurrence: None)
  Receive Date: 20081016
  Receipt Date: 20081009
  Transmission Date: 20090506
  Serious: Yes (Other)
  Sender: FDA-Public Use
  Company Number: FR-BAUSCH-2008BL004355

PATIENT
  Age: 60 Year
  Sex: Female

DRUGS (1)
  1. CARTEOL 1% COLLYRE [Suspect]
     Indication: DRUG USE FOR UNKNOWN INDICATION
     Route: 047

REACTIONS (2)
  - LIVER DISORDER [None]
  - SYSTEMIC LUPUS ERYTHEMATOSUS [None]
